FAERS Safety Report 5362927-6 (Version None)
Quarter: 2007Q2

REPORT INFORMATION
  Report Type: 
  Country: None (occurrence: None)
  Receive Date: 20070530
  Receipt Date: 20070328
  Transmission Date: 20071010
  Serious: No
  Sender: FDA-Public Use
  Company Number: 2007PV032588

PATIENT
  Age: 67 Year
  Sex: Female
  Weight: 117.9352 kg

DRUGS (4)
  1. BYETTA [Suspect]
     Indication: DIABETES MELLITUS NON-INSULIN-DEPENDENT
     Dosage: 10 MCB;BID;SC ; 5 MCG;BID;SC
     Route: 058
     Dates: start: 20070215, end: 20070305
  2. BYETTA [Suspect]
     Indication: DIABETES MELLITUS NON-INSULIN-DEPENDENT
     Dosage: 10 MCB;BID;SC ; 5 MCG;BID;SC
     Route: 058
     Dates: start: 20070306
  3. METFORMIN HCL [Concomitant]
  4. GLYBURIDE AND METFORMIN HCL [Concomitant]

REACTIONS (10)
  - ANOREXIA [None]
  - ASTHENIA [None]
  - BLOOD GLUCOSE INCREASED [None]
  - DYSGEUSIA [None]
  - FEELING JITTERY [None]
  - FLUID INTAKE REDUCED [None]
  - INFECTION [None]
  - NAUSEA [None]
  - VOMITING [None]
  - WEIGHT INCREASED [None]
